FAERS Safety Report 15558008 (Version 1)
Quarter: 2018Q4

REPORT INFORMATION
  Report Type: Spontaneous
  Country: US (occurrence: US)
  Receive Date: 20181027
  Receipt Date: 20181027
  Transmission Date: 20190205
  Serious: No
  Sender: FDA-Public Use
  Company Number: US-009507513-1810USA009815

PATIENT
  Age: 4 Year
  Sex: Female

DRUGS (4)
  1. AMPHOTERICIN B. [Concomitant]
     Active Substance: AMPHOTERICIN B
     Indication: MUCORMYCOSIS
  2. NOXAFIL [Suspect]
     Active Substance: POSACONAZOLE
     Indication: NECROTISING FASCIITIS FUNGAL
     Dosage: 8.8 MILLIGRAM/KILOGRAM, FOUR TIMES A DAY
     Route: 048
  3. NOXAFIL [Suspect]
     Active Substance: POSACONAZOLE
     Indication: MUCORMYCOSIS
  4. AMPHOTERICIN B. [Concomitant]
     Active Substance: AMPHOTERICIN B
     Indication: NECROTISING FASCIITIS FUNGAL
     Dosage: 5 MILLIGRAM/KILOGRAM/DAY
     Route: 042

REACTIONS (1)
  - Off label use [Unknown]
